FAERS Safety Report 8175715-2 (Version None)
Quarter: 2012Q1

REPORT INFORMATION
  Report Type: 
  Country: None (occurrence: None)
  Receive Date: 20120301
  Receipt Date: 20120214
  Transmission Date: 20120608
  Serious: Yes (Other)
  Sender: FDA-Public Use
  Company Number: FR-AMGEN-FRASP2012010676

PATIENT
  Age: 41 Year
  Sex: Female

DRUGS (5)
  1. PREDNISONE TAB [Suspect]
     Dosage: 6 MG, 1X/DAY
  2. ENBREL [Suspect]
     Indication: RHEUMATOID ARTHRITIS
     Dosage: 25 MG, 2X/WEEK
     Route: 058
     Dates: start: 20030801, end: 20040301
  3. RIMIFON [Suspect]
     Indication: TUBERCULIN TEST POSITIVE
     Dosage: UNK
     Dates: start: 20030801, end: 20040301
  4. METHOTREXATE [Suspect]
     Dosage: 7.5 MG, WEEKLY
     Dates: start: 20040109, end: 20040301
  5. METHOTREXATE [Suspect]
     Dosage: 15 MG, WEEKLY
     Dates: start: 20030301

REACTIONS (1)
  - ABORTION SPONTANEOUS [None]
